FAERS Safety Report 12806321 (Version 1)
Quarter: 2016Q4

REPORT INFORMATION
  Report Type: Spontaneous
  Country: US (occurrence: US)
  Receive Date: 20161003
  Receipt Date: 20161003
  Transmission Date: 20170207
  Serious: Yes (Other)
  Sender: FDA-Public Use
  Company Number: None

PATIENT
  Age: 71 Year
  Sex: Male
  Weight: 75.5 kg

DRUGS (2)
  1. PROTAMINE [Suspect]
     Active Substance: PROTAMINE
     Indication: CORONARY ARTERY BYPASS
  2. PROTAMINE [Suspect]
     Active Substance: PROTAMINE
     Indication: POSTOPERATIVE CARE

REACTIONS (3)
  - Ventricular tachycardia [None]
  - Bradycardia [None]
  - Hypotension [None]

NARRATIVE: CASE EVENT DATE: 20160926
